FAERS Safety Report 4284171-6 (Version None)
Quarter: 2004Q1

REPORT INFORMATION
  Report Type: 
  Country: None (occurrence: None)
  Receive Date: 20040130
  Receipt Date: 20040122
  Transmission Date: 20041129
  Serious: Yes (Other)
  Sender: FDA-Public Use
  Company Number: 2003190553FR

PATIENT
  Age: 55 Year
  Sex: Female

DRUGS (4)
  1. SULFASALAZINE [Suspect]
     Indication: RHEUMATOID ARTHRITIS
     Dosage: 1000 MG, BID, ORAL
     Route: 048
  2. CORTISONE (CORTISONE) [Concomitant]
  3. PIROXICAM [Concomitant]
  4. PREDNISOLONE [Concomitant]

REACTIONS (7)
  - CONJUNCTIVITIS [None]
  - EOSINOPHILIA [None]
  - ERYTHEMA [None]
  - INFLAMMATION [None]
  - PLEURAL EFFUSION [None]
  - PLEURISY [None]
  - SCRATCH [None]
